FAERS Safety Report 24667299 (Version 1)
Quarter: 2024Q4

REPORT INFORMATION
  Report Type: Spontaneous
  Country: CN (occurrence: CN)
  Receive Date: 20241126
  Receipt Date: 20241126
  Transmission Date: 20250115
  Serious: Yes (Other)
  Sender: PURDUE
  Company Number: CN-NAPPMUNDI-GBR-2024-0121471

PATIENT
  Age: 61 Year
  Sex: Male
  Weight: 57.5 kg

DRUGS (3)
  1. OXYCONTIN [Suspect]
     Active Substance: OXYCODONE HYDROCHLORIDE
     Indication: Cancer pain
     Dosage: 10 MILLIGRAM, BID
     Route: 048
     Dates: start: 20241102, end: 20241106
  2. OXYCONTIN [Suspect]
     Active Substance: OXYCODONE HYDROCHLORIDE
     Dosage: 20 MILLIGRAM, BID
     Route: 048
     Dates: start: 20241107, end: 20241112
  3. ACETAMINOPHEN\OXYCODONE HYDROCHLORIDE [Suspect]
     Active Substance: ACETAMINOPHEN\OXYCODONE HYDROCHLORIDE
     Indication: Cancer pain
     Dosage: 0.33 GRAM, Q6H
     Route: 048
     Dates: start: 20241028, end: 20241101

REACTIONS (7)
  - Miosis [Recovered/Resolved]
  - Confusional state [Recovering/Resolving]
  - Hyperpyrexia [Recovered/Resolved]
  - Chills [Recovering/Resolving]
  - Loss of consciousness [Recovered/Resolved]
  - Oxygen saturation decreased [Recovered/Resolved]
  - Heart rate increased [Unknown]

NARRATIVE: CASE EVENT DATE: 20241112
